FAERS Safety Report 12436957 (Version 1)
Quarter: 2016Q2

REPORT INFORMATION
  Report Type: Report from Study
  Country: BR (occurrence: BR)
  Receive Date: 20160606
  Receipt Date: 20160606
  Transmission Date: 20160815
  Serious: Yes (Death)
  Sender: FDA-Public Use
  Company Number: PHHY2016BR077373

PATIENT
  Sex: Male
  Weight: 82 kg

DRUGS (1)
  1. EXELON PATCH [Suspect]
     Active Substance: RIVASTIGMINE
     Indication: DEMENTIA
     Dosage: PATCH 10 (CM2), QD
     Route: 062

REACTIONS (2)
  - Pancreatitis [Fatal]
  - Cholelithiasis [Fatal]
